FAERS Safety Report 24584292 (Version 2)
Quarter: 2024Q4

REPORT INFORMATION
  Report Type: Spontaneous
  Country: HU (occurrence: HU)
  Receive Date: 20241106
  Receipt Date: 20241119
  Transmission Date: 20250115
  Serious: Yes (Death, Other)
  Sender: CELLTRION
  Company Number: HU-JNJFOC-20240436881

PATIENT

DRUGS (2)
  1. RITUXIMAB [Suspect]
     Active Substance: RITUXIMAB
     Indication: Marginal zone lymphoma
     Dosage: 700 MILLIGRAM
     Route: 065
     Dates: start: 20201123
  2. IMBRUVICA [Suspect]
     Active Substance: IBRUTINIB
     Indication: Marginal zone lymphoma
     Dosage: 560 MILLIGRAM, 1 DAY, UNKNOWN
     Route: 048
     Dates: start: 20201123

REACTIONS (6)
  - Death [Fatal]
  - Respiratory failure [Unknown]
  - Pneumonia [Unknown]
  - Dyspnoea [Unknown]
  - SARS-CoV-2 test positive [Unknown]
  - Off label use [Unknown]
